FAERS Safety Report 9250577 (Version 1)
Quarter: 2013Q2

REPORT INFORMATION
  Report Type: Report from Study
  Country: FR (occurrence: FR)
  Receive Date: 20130424
  Receipt Date: 20130424
  Transmission Date: 20140414
  Serious: Yes (Death)
  Sender: FDA-Public Use
  Company Number: FR-ROCHE-GNE246100

PATIENT
  Age: 81 Year
  Sex: 0

DRUGS (2)
  1. RITUXIMAB [Suspect]
     Indication: PEMPHIGUS
     Dosage: 375 MG/M2, UNK
     Route: 065
  2. ETANERCEPT [Concomitant]
     Indication: RHEUMATOID ARTHRITIS

REACTIONS (1)
  - Sepsis [Fatal]
